FAERS Safety Report 5260792-9 (Version None)
Quarter: 2007Q1

REPORT INFORMATION
  Report Type: 
  Country: None (occurrence: None)
  Receive Date: 20061208
  Receipt Date: 20050714
  Transmission Date: 20070707
  Serious: No
  Sender: FDA-Public Use
  Company Number: 2005UW10491

PATIENT
  Age: 50 Year
  Sex: Female
  Weight: 72.574 kg

DRUGS (1)
  1. NEXIUM [Suspect]
     Indication: COUGH
     Dosage: 40 MG DAILY PO
     Route: 048
     Dates: start: 20050708

REACTIONS (1)
  - HYPERSENSITIVITY [None]
